FAERS Safety Report 7611106-8 (Version None)
Quarter: 2011Q3

REPORT INFORMATION
  Report Type: 
  Country: None (occurrence: None)
  Receive Date: 20110707
  Receipt Date: 20110704
  Transmission Date: 20111222
  Serious: Yes (Hospitalization)
  Sender: FDA-Public Use
  Company Number: ENT 2011-0049

PATIENT
  Age: 69 Year
  Sex: Male

DRUGS (3)
  1. GLUCOSAMIN [Concomitant]
  2. ENTACAPONE [Suspect]
     Dosage: 1400MG, ORAL
     Route: 048
  3. COHEMIN [Concomitant]

REACTIONS (7)
  - DRUG EFFECT DECREASED [None]
  - SLEEP DISORDER [None]
  - TREMOR [None]
  - COMPLETED SUICIDE [None]
  - FATIGUE [None]
  - SUICIDE ATTEMPT [None]
  - DRUG ADMINISTRATION ERROR [None]
